FAERS Safety Report 21840712 (Version 2)
Quarter: 2023Q1

REPORT INFORMATION
  Report Type: Report from Study
  Country: US (occurrence: US)
  Receive Date: 20230110
  Receipt Date: 20230216
  Transmission Date: 20230417
  Serious: Yes (Other)
  Sender: FDA-Public Use
  Company Number: US-SUN PHARMACEUTICAL INDUSTRIES LTD-2022R1-372548

PATIENT
  Age: 57 Year
  Sex: Female

DRUGS (1)
  1. DECADRON [Suspect]
     Active Substance: DEXAMETHASONE
     Indication: Metastases to lung
     Dosage: 10 MILLIGRAM, QID
     Route: 065

REACTIONS (2)
  - Hemianopia homonymous [Unknown]
  - Headache [Unknown]
